FAERS Safety Report 13447178 (Version 2)
Quarter: 2017Q2

REPORT INFORMATION
  Report Type: Spontaneous
  Country: TR (occurrence: TR)
  Receive Date: 20170417
  Receipt Date: 20170420
  Transmission Date: 20170830
  Serious: Yes (Life-Threatening, Hospitalization)
  Sender: FDA-Public Use
  Company Number: PHHY2017TR053264

PATIENT
  Sex: Female
  Weight: 1.38 kg

DRUGS (4)
  1. CAFFEINE. [Concomitant]
     Active Substance: CAFFEINE
     Indication: APNOEA
     Dosage: 5 MG/KG, PER DOSE
  2. VANCOMYCIN [Suspect]
     Active Substance: VANCOMYCIN
     Indication: PRODUCT USED FOR UNKNOWN INDICATION
     Dosage: 10 MG/KG PER DOSE
     Route: 065
  3. PIPERACILLIN AND TAZOBACTAM [Concomitant]
     Active Substance: PIPERACILLIN SODIUM\TAZOBACTAM SODIUM
     Indication: PRODUCT USED FOR UNKNOWN INDICATION
     Dosage: 50 MG/KG PER DOSE
  4. CAFFEINE. [Concomitant]
     Active Substance: CAFFEINE
     Dosage: 20 MG/KG, UNK
     Route: 065

REACTIONS (2)
  - Accidental overdose [Recovered/Resolved]
  - Apnoea [Recovered/Resolved]
